FAERS Safety Report 15312268 (Version 1)
Quarter: 2018Q3

REPORT INFORMATION
  Report Type: Spontaneous
  Country: CA (occurrence: CA)
  Receive Date: 20180823
  Receipt Date: 20180823
  Transmission Date: 20181010
  Serious: Yes (Hospitalization)
  Sender: FDA-Public Use
  Company Number: CA-PFIZER INC-2018337220

PATIENT
  Age: 59 Year
  Sex: Male
  Weight: 40.82 kg

DRUGS (2)
  1. WARFARIN [Concomitant]
     Active Substance: WARFARIN
     Dosage: UNK
  2. AMIODARONE HCL [Suspect]
     Active Substance: AMIODARONE HYDROCHLORIDE
     Dosage: 300 MG, 1X/DAY
     Route: 048

REACTIONS (5)
  - Hypotension [Unknown]
  - Arrhythmia [Unknown]
  - Hyperthyroidism [Unknown]
  - Syncope [Unknown]
  - International normalised ratio increased [Unknown]
